FAERS Safety Report 8453413-5 (Version None)
Quarter: 2012Q2

REPORT INFORMATION
  Report Type: 
  Country: None (occurrence: None)
  Receive Date: 20120620
  Receipt Date: 20120515
  Transmission Date: 20120825
  Serious: No
  Sender: FDA-Public Use
  Company Number: US-VERTEX PHARMACEUTICALS INC.-AE-2012-007316

PATIENT
  Sex: Female
  Weight: 80.358 kg

DRUGS (8)
  1. PEGASYS [Concomitant]
     Indication: HEPATITIS C
     Route: 058
     Dates: start: 20120220
  2. RIBAVIRIN [Concomitant]
     Indication: HEPATITIS C
     Route: 048
     Dates: start: 20120220
  3. LISINOPRIL [Concomitant]
     Indication: HYPERTENSION
     Route: 048
  4. CRESTOR [Concomitant]
     Indication: BLOOD CHOLESTEROL INCREASED
     Route: 048
  5. LUNESTA [Concomitant]
     Route: 048
  6. INCIVEK [Suspect]
     Indication: HEPATITIS C
     Route: 048
     Dates: start: 20120220, end: 20120512
  7. ALPRAZOLAM [Concomitant]
     Indication: ANXIETY
     Route: 048
  8. LORATADINE [Concomitant]
     Indication: HYPERSENSITIVITY
     Route: 048

REACTIONS (8)
  - FATIGUE [None]
  - PRURITUS GENERALISED [None]
  - ANORECTAL DISCOMFORT [None]
  - MOUTH ULCERATION [None]
  - RASH GENERALISED [None]
  - DYSGEUSIA [None]
  - VULVOVAGINAL PRURITUS [None]
  - ANAL PRURITUS [None]
